FAERS Safety Report 10380347 (Version 1)
Quarter: 2014Q1

REPORT INFORMATION
  Report Type: Spontaneous
  Country: US (occurrence: None)
  Receive Date: 20140306
  Receipt Date: 20140306
  Transmission Date: 20141002
  Serious: Yes (Other)
  Sender: FDA-Public Use
  Company Number: 163-21880-13063518

PATIENT
  Age: 76 Year
  Sex: Male
  Weight: 83 kg

DRUGS (6)
  1. REVLIMID (LENALIDOMIDE) (25 MILLIGRAM, CAPSULES) [Suspect]
     Indication: PLASMA CELL MYELOMA
     Dosage: 25 MG, 21 IN 21 D, PO
     Route: 048
     Dates: start: 20130322
  2. DEXAMETHASONE (DEXAMETHASONE) [Suspect]
     Indication: PRODUCT USED FOR UNKNOWN INDICATION
  3. ACYCLOVIR (ACICLOVIR) [Concomitant]
  4. CARDURA (DOXAZOSIN MESILATE) [Concomitant]
  5. CELEBREX (CELECOXIB) [Concomitant]
  6. PRILOSEC DR (OMEPRAZOLE) [Concomitant]

REACTIONS (5)
  - Aggression [None]
  - Aphonia [None]
  - Mood altered [None]
  - Pain in extremity [None]
  - Paraesthesia [None]
